FAERS Safety Report 9229294 (Version 4)
Quarter: 2013Q3

REPORT INFORMATION
  Report Type: Spontaneous
  Country: AU (occurrence: AU)
  Receive Date: 20130412
  Receipt Date: 20130828
  Transmission Date: 20140515
  Serious: Yes (Life-Threatening, Hospitalization, Disabling, Other)
  Sender: FDA-Public Use
  Company Number: AU-AMGEN-AUSSP2013023793

PATIENT
  Age: 74 Year
  Sex: Male
  Weight: 101 kg

DRUGS (7)
  1. XGEVA [Suspect]
     Indication: METASTASES TO BONE
     Dosage: 120 MG, Q4WK
     Route: 058
     Dates: start: 20121207
  2. OXYNORM [Concomitant]
     Dosage: 10 MG, Q4H
     Route: 048
     Dates: start: 2012
  3. CALCIUM [Concomitant]
  4. VITAMIN D                          /00107901/ [Concomitant]
  5. OXYCONTIN [Concomitant]
     Dosage: 40 MG, BID
  6. PANADOL OSTEO [Concomitant]
     Dosage: 2 TABLETA, Q8H
  7. DOCUSATE SODIUM\SENNOSIDES [Concomitant]

REACTIONS (6)
  - Infection [Unknown]
  - Dehydration [Unknown]
  - Pseudomonas infection [Unknown]
  - Prostatomegaly [Unknown]
  - Polyp [Unknown]
  - Urinary retention [Unknown]
